FAERS Safety Report 9181417 (Version 2)
Quarter: 2013Q2

REPORT INFORMATION
  Report Type: Spontaneous
  Country: US (occurrence: US)
  Receive Date: 20130322
  Receipt Date: 20130408
  Transmission Date: 20140414
  Serious: Yes (Hospitalization)
  Sender: FDA-Public Use
  Company Number: US-JNJFOC-20130312114

PATIENT
  Age: 84 Year
  Sex: Male
  Weight: 85.9 kg

DRUGS (1)
  1. ZYTIGA [Suspect]
     Indication: PROSTATE CANCER
     Route: 048
     Dates: start: 20120222

REACTIONS (5)
  - Dizziness [Unknown]
  - Fall [Unknown]
  - Anaemia [Unknown]
  - Haematochezia [Unknown]
  - Prostatic specific antigen increased [Unknown]
